FAERS Safety Report 5970482-2 (Version None)
Quarter: 2008Q4

REPORT INFORMATION
  Report Type: 
  Country: None (occurrence: None)
  Receive Date: 20081126
  Receipt Date: 20081027
  Transmission Date: 20090506
  Serious: No
  Sender: FDA-Public Use
  Company Number: US-ABBOTT-08P-163-0484214-00

PATIENT
  Sex: Male
  Weight: 86.26 kg

DRUGS (7)
  1. SIMCOR [Suspect]
     Indication: BLOOD CHOLESTEROL
     Route: 048
     Dates: start: 20081021, end: 20081022
  2. SIMCOR [Suspect]
     Dates: start: 20081027
  3. DIPHENHYDRAMINE HYDROCHLORIDE [Concomitant]
     Indication: INSOMNIA
  4. TRIAZOLAM [Concomitant]
     Indication: INSOMNIA
     Route: 048
  5. AMITRIPTYLINE HCL [Concomitant]
     Indication: NEUROPATHY PERIPHERAL
     Route: 048
  6. GABAPENTIN [Concomitant]
     Indication: NEUROPATHY PERIPHERAL
     Route: 048
  7. PROPRANOLOL [Concomitant]
     Indication: MIGRAINE
     Route: 048

REACTIONS (2)
  - FEELING HOT [None]
  - SENSORY DISTURBANCE [None]
